FAERS Safety Report 4414050-2 (Version None)
Quarter: 2004Q3

REPORT INFORMATION
  Report Type: 
  Country: None (occurrence: None)
  Receive Date: 20040803
  Receipt Date: 20040727
  Transmission Date: 20050211
  Serious: Yes (Hospitalization)
  Sender: FDA-Public Use
  Company Number: IT-GLAXOSMITHKLINE-B0340697A

PATIENT
  Age: 4 Year
  Sex: Male

DRUGS (1)
  1. AMOXYCILLIN + CLAVULANIC ACID [Suspect]
     Indication: SCARLET FEVER
     Dosage: 14ML PER DAY
     Route: 048
     Dates: start: 20040709, end: 20040718

REACTIONS (5)
  - AURICULAR SWELLING [None]
  - CONJUNCTIVAL HYPERAEMIA [None]
  - ERYTHEMA [None]
  - RASH MACULO-PAPULAR [None]
  - RASH PRURITIC [None]
